FAERS Safety Report 9782462 (Version 1)
Quarter: 2013Q4

REPORT INFORMATION
  Report Type: Spontaneous
  Country: US (occurrence: US)
  Receive Date: 20131226
  Receipt Date: 20131226
  Transmission Date: 20140711
  Serious: No
  Sender: FDA-Public Use
  Company Number: US-B.I. PHARMACEUTICALS,INC./RIDGEFIELD-2013-BI-42288BP

PATIENT
  Age: 83 Year
  Sex: Male
  Weight: 74 kg

DRUGS (8)
  1. PRADAXA [Suspect]
     Indication: ATRIAL FIBRILLATION
     Dosage: 300 MG
     Route: 048
     Dates: start: 20131114
  2. PRADAXA [Suspect]
     Indication: CEREBROVASCULAR ACCIDENT PROPHYLAXIS
  3. MULTAQ [Concomitant]
     Indication: ATRIAL FIBRILLATION
     Dosage: STRENGTH: 400MG
     Route: 048
  4. ATORVASTATIN [Concomitant]
     Indication: BLOOD CHOLESTEROL INCREASED
     Route: 048
  5. METOPROLOL [Concomitant]
     Route: 048
  6. PANTOPRAZOLE [Concomitant]
     Dosage: STRENGTH: 40MG
     Route: 048
  7. DIGOXIN [Concomitant]
     Route: 048
  8. ENALAPRIL [Concomitant]
     Route: 048

REACTIONS (2)
  - Laceration [Not Recovered/Not Resolved]
  - Fall [Recovered/Resolved]
